FAERS Safety Report 5535403-5 (Version None)
Quarter: 2007Q4

REPORT INFORMATION
  Report Type: 
  Country: None (occurrence: None)
  Receive Date: 20071206
  Receipt Date: 20071128
  Transmission Date: 20080405
  Serious: Yes (Hospitalization)
  Sender: FDA-Public Use
  Company Number: GB-PFIZER INC-2007097596

PATIENT
  Sex: Female
  Weight: 93 kg

DRUGS (3)
  1. DEPO-PROVERA SUSPENSION/INJ [Suspect]
     Indication: CONTRACEPTION
     Route: 030
     Dates: start: 20051124, end: 20051124
  2. DEPO-PROVERA SUSPENSION/INJ [Suspect]
     Route: 030
     Dates: start: 20071016, end: 20071016
  3. CITALOPRAM HYDROBROMIDE [Concomitant]
     Dosage: DAILY DOSE:20MG

REACTIONS (1)
  - INJECTION SITE ABSCESS [None]
